FAERS Safety Report 21691645 (Version 3)
Quarter: 2023Q1

REPORT INFORMATION
  Report Type: Report from Study
  Country: US (occurrence: None)
  Receive Date: 20221207
  Receipt Date: 20230323
  Transmission Date: 20230418
  Serious: Yes (Hospitalization)
  Sender: FDA-Public Use
  Company Number: US-ROCHE-3231757

PATIENT
  Age: 40 Year
  Sex: Male

DRUGS (8)
  1. VENETOCLAX [Suspect]
     Active Substance: VENETOCLAX
     Indication: Acute lymphocytic leukaemia
     Dosage: LAST DOSE ADMINISTERED 18/NOV/2022
     Route: 065
     Dates: start: 20220820
  2. CYCLOPHOSPHAMIDE [Suspect]
     Active Substance: CYCLOPHOSPHAMIDE
     Indication: Acute lymphocytic leukaemia
     Dosage: LAST DOSE ADMINISTERED 18/NOV/2022
     Route: 065
     Dates: start: 20220820
  3. CYTARABINE [Suspect]
     Active Substance: CYTARABINE
     Indication: Acute lymphocytic leukaemia
     Dosage: LAST DOSE ADMINISTERED 18/NOV/2022
     Route: 065
     Dates: start: 20220820
  4. MERCAPTOPURINE [Suspect]
     Active Substance: MERCAPTOPURINE
     Indication: Acute lymphocytic leukaemia
     Dosage: LAST DOSE ADMINISTERED 18/NOV/2022
     Route: 065
     Dates: start: 20220820, end: 20221118
  5. METHOTREXATE [Suspect]
     Active Substance: METHOTREXATE
     Indication: Acute lymphocytic leukaemia
     Dosage: LAST DOSE ADMINISTERED 18/NOV/2022
     Route: 065
     Dates: start: 20220820
  6. PEGASPARGASE [Suspect]
     Active Substance: PEGASPARGASE
     Indication: Acute lymphocytic leukaemia
     Dosage: LAST DOSE ADMINISTERED 18/NOV/2022
     Route: 065
     Dates: start: 20220820
  7. PREDNISONE [Suspect]
     Active Substance: PREDNISONE
     Indication: Acute lymphocytic leukaemia
     Dosage: LAST DOSE ADMINISTERED 18/NOV/2022
     Route: 065
     Dates: start: 20220820
  8. VINCRISTINE [Suspect]
     Active Substance: VINCRISTINE
     Indication: Acute lymphocytic leukaemia
     Dosage: LAST DOSE ADMINISTERED 18/NOV/2022
     Route: 065
     Dates: start: 20220820

REACTIONS (3)
  - Diarrhoea [Unknown]
  - Febrile neutropenia [Recovered/Resolved]
  - Sepsis [Recovered/Resolved]

NARRATIVE: CASE EVENT DATE: 20221201
